FAERS Safety Report 6562852-9 (Version None)
Quarter: 2010Q1

REPORT INFORMATION
  Report Type: 
  Country: None (occurrence: None)
  Receive Date: 20100130
  Receipt Date: 20091118
  Transmission Date: 20100710
  Serious: No
  Sender: FDA-Public Use
  Company Number: US-ABBOTT-09P-163-0610097-00

PATIENT
  Sex: Male
  Weight: 66.738 kg

DRUGS (3)
  1. HUMIRA [Suspect]
     Indication: ANKYLOSING SPONDYLITIS
     Route: 058
     Dates: start: 20080101, end: 20090107
  2. HUMIRA [Suspect]
     Indication: CROHN'S DISEASE
     Dosage: ONE 40 MG PEN LEFT-OVER FROM JAN 2009
     Dates: start: 20091101
  3. CLARITIN [Concomitant]
     Indication: DRUG USE FOR UNKNOWN INDICATION

REACTIONS (3)
  - ARTHRITIS [None]
  - HAEMATOCHEZIA [None]
  - NASOPHARYNGITIS [None]
